FAERS Safety Report 4917051-0 (Version None)
Quarter: 2006Q1

REPORT INFORMATION
  Report Type: 
  Country: None (occurrence: None)
  Receive Date: 20060216
  Receipt Date: 20060216
  Transmission Date: 20060701
  Serious: Yes (Hospitalization, Other)
  Sender: FDA-Public Use
  Company Number: None

PATIENT
  Age: 46 Year
  Sex: Male
  Weight: 128.1 kg

DRUGS (2)
  1. LISINOPRIL [Suspect]
     Indication: DIABETES MELLITUS
     Dosage: 5 MG PO DAILY
     Route: 048
     Dates: start: 20050201, end: 20051001
  2. LISINOPRIL [Suspect]
     Indication: HYPERTENSION
     Dosage: 5 MG PO DAILY
     Route: 048
     Dates: start: 20050201, end: 20051001

REACTIONS (1)
  - ANGIONEUROTIC OEDEMA [None]
